FAERS Safety Report 5665241-4 (Version None)
Quarter: 2008Q1

REPORT INFORMATION
  Report Type: 
  Country: None (occurrence: None)
  Receive Date: 20080314
  Receipt Date: 20080103
  Transmission Date: 20080703
  Serious: No
  Sender: FDA-Public Use
  Company Number: US-ABBOTT-07P-163-0416453-00

PATIENT
  Sex: Female
  Weight: 90.8 kg

DRUGS (3)
  1. HUMIRA [Suspect]
     Indication: RHEUMATOID ARTHRITIS
     Route: 058
     Dates: start: 20061201, end: 20070601
  2. HUMIRA [Suspect]
     Route: 058
     Dates: start: 20070601
  3. LEFLUNOMIDE [Concomitant]
     Indication: RHEUMATOID ARTHRITIS

REACTIONS (8)
  - ABDOMINAL PAIN UPPER [None]
  - DRUG INEFFECTIVE [None]
  - HYPERSENSITIVITY [None]
  - MOUTH ULCERATION [None]
  - NAUSEA [None]
  - PAIN [None]
  - RHEUMATOID ARTHRITIS [None]
  - WHEEZING [None]
